FAERS Safety Report 5399474-1 (Version None)
Quarter: 2007Q3

REPORT INFORMATION
  Report Type: 
  Country: None (occurrence: None)
  Receive Date: 20070727
  Receipt Date: 20070716
  Transmission Date: 20080115
  Serious: Yes (Other)
  Sender: FDA-Public Use
  Company Number: US-SHR-US-2007-026328

PATIENT
  Age: 35 Year
  Sex: Female

DRUGS (9)
  1. BETASERON [Suspect]
     Dosage: 8 MIU, EVERY 2D
     Route: 058
     Dates: start: 20031125
  2. MACRODANTIN [Concomitant]
  3. IBUPROFEN [Concomitant]
  4. FOLIC ACID [Concomitant]
  5. Q10 [Concomitant]
  6. CRANBERRY PILLS [Concomitant]
  7. VITAMIN CAP [Concomitant]
  8. PROGESTERONE [Concomitant]
     Dosage: UNK, 2X/DAY
     Route: 067
  9. CYMBALTA (DULOXETIN) [Concomitant]

REACTIONS (3)
  - BREAST DISCHARGE [None]
  - MENSTRUATION IRREGULAR [None]
  - NIPPLE EXUDATE BLOODY [None]
